FAERS Safety Report 19816605 (Version 3)
Quarter: 2021Q4

REPORT INFORMATION
  Report Type: Report from Study
  Country: US (occurrence: US)
  Receive Date: 20210910
  Receipt Date: 20211014
  Transmission Date: 20220303
  Serious: Yes (Death, Hospitalization)
  Sender: FDA-Public Use
  Company Number: US-BAYER-2021-196835

PATIENT
  Age: 57 Year
  Sex: Female

DRUGS (2)
  1. COPANLISIB [Suspect]
     Active Substance: COPANLISIB
     Indication: Neoplasm malignant
     Dosage: 45 MG
     Dates: start: 20210623, end: 20210804
  2. NIRAPARIB [Suspect]
     Active Substance: NIRAPARIB
     Indication: Neoplasm malignant
     Dosage: 100 MG
     Dates: start: 20210623, end: 20210817

REACTIONS (2)
  - Cerebrovascular accident [Fatal]
  - Endocarditis noninfective [Recovered/Resolved]

NARRATIVE: CASE EVENT DATE: 20210818
